FAERS Safety Report 12877872 (Version 1)
Quarter: 2016Q4

REPORT INFORMATION
  Report Type: Spontaneous
  Country: FR (occurrence: FR)
  Receive Date: 20161024
  Receipt Date: 20161024
  Transmission Date: 20170207
  Serious: Yes (Death, Hospitalization, Other)
  Sender: FDA-Public Use
  Company Number: FR-ASTRAZENECA-2016SF11215

PATIENT
  Age: 27632 Day
  Sex: Male

DRUGS (6)
  1. ACUILIX [Suspect]
     Active Substance: HYDROCHLOROTHIAZIDE\QUINAPRIL HYDROCHLORIDE
     Indication: HYPERTENSION
     Route: 048
  2. KARDEGIC [Suspect]
     Active Substance: ASPIRIN LYSINE
     Indication: ATRIAL FLUTTER
     Route: 048
  3. ATENOLOL. [Suspect]
     Active Substance: ATENOLOL
     Indication: HYPERTENSION
     Route: 048
  4. LEDERFOLINE [Suspect]
     Active Substance: LEUCOVORIN CALCIUM
     Indication: HYPOVITAMINOSIS
     Route: 048
  5. ENANTONE SR [Suspect]
     Active Substance: LEUPROLIDE ACETATE
     Indication: PROSTATE CANCER METASTATIC
     Route: 065
  6. MOPRAL [Suspect]
     Active Substance: OMEPRAZOLE SODIUM
     Indication: PRODUCT USED FOR UNKNOWN INDICATION
     Route: 048

REACTIONS (21)
  - Multiple organ dysfunction syndrome [Fatal]
  - Blood pressure systolic increased [None]
  - Shock [Fatal]
  - Endotracheal intubation complication [None]
  - Arrhythmia supraventricular [Unknown]
  - Anaemia [None]
  - Respiratory acidosis [None]
  - Procedural pneumothorax [None]
  - Respiratory alkalosis [None]
  - Metabolic acidosis [None]
  - Hyponatraemia [None]
  - Interstitial lung disease [Fatal]
  - Left ventricular hypertrophy [Unknown]
  - Bundle branch block left [Unknown]
  - Bacterial test positive [None]
  - Infection in an immunocompromised host [None]
  - Musculoskeletal stiffness [None]
  - Pneumocystis jirovecii pneumonia [None]
  - Acute respiratory distress syndrome [Fatal]
  - Acute kidney injury [Fatal]
  - Bronchial haemorrhage [None]

NARRATIVE: CASE EVENT DATE: 20150827
